FAERS Safety Report 6518208-8 (Version None)
Quarter: 2009Q4

REPORT INFORMATION
  Report Type: 
  Country: None (occurrence: None)
  Receive Date: 20091218
  Receipt Date: 20091210
  Transmission Date: 20100525
  Serious: Yes (Hospitalization)
  Sender: FDA-Public Use
  Company Number: ADR53432009

PATIENT
  Age: 68 Year
  Sex: Male

DRUGS (5)
  1. RAMIPRIL [Suspect]
     Indication: VENTRICULAR TACHYCARDIA
  2. AMIODARONE HCL [Concomitant]
  3. BISOPROLOL [Concomitant]
  4. MAGNESIUM [Concomitant]
  5. MEXILETINE [Concomitant]

REACTIONS (5)
  - CONGESTIVE CARDIOMYOPATHY [None]
  - DILATATION VENTRICULAR [None]
  - DRUG INEFFECTIVE [None]
  - HYPOTENSION [None]
  - VENTRICULAR TACHYCARDIA [None]
